FAERS Safety Report 5468582-9 (Version None)
Quarter: 2007Q3

REPORT INFORMATION
  Report Type: 
  Country: None (occurrence: None)
  Receive Date: 20070926
  Receipt Date: 20070918
  Transmission Date: 20080115
  Serious: Yes (Other)
  Sender: FDA-Public Use
  Company Number: US-JNJFOC-20070601830

PATIENT
  Sex: Female
  Weight: 64.41 kg

DRUGS (5)
  1. REMICADE [Suspect]
     Indication: CROHN'S DISEASE
     Route: 042
     Dates: start: 20030101
  2. REMICADE [Suspect]
     Indication: RHEUMATOID ARTHRITIS
     Route: 042
     Dates: start: 20030101
  3. PENTASA [Concomitant]
  4. 6-MP [Concomitant]
  5. PAXIL [Concomitant]

REACTIONS (8)
  - ARTHRALGIA [None]
  - DRUG INEFFECTIVE [None]
  - DYSPHAGIA [None]
  - ERYTHEMA [None]
  - GAIT DISTURBANCE [None]
  - JOINT STIFFNESS [None]
  - SPEECH DISORDER [None]
  - SWOLLEN TONGUE [None]
